FAERS Safety Report 6850631-4 (Version None)
Quarter: 2010Q3

REPORT INFORMATION
  Report Type: 
  Country: None (occurrence: None)
  Receive Date: 20100716
  Receipt Date: 20071017
  Transmission Date: 20110219
  Serious: No
  Sender: FDA-Public Use
  Company Number: US-PFIZER INC-2007088124

PATIENT
  Sex: Female
  Weight: 89.8 kg

DRUGS (4)
  1. CHANTIX [Suspect]
     Indication: SMOKING CESSATION THERAPY
     Dates: start: 20071001
  2. EFFEXOR XR [Concomitant]
     Indication: DEPRESSION
  3. EFFEXOR XR [Concomitant]
     Indication: ANXIETY
  4. TRAMADOL [Concomitant]
     Indication: ARTHRALGIA

REACTIONS (2)
  - MALAISE [None]
  - VOMITING [None]
